FAERS Safety Report 7505205-9 (Version None)
Quarter: 2011Q2

REPORT INFORMATION
  Report Type: 
  Country: None (occurrence: None)
  Receive Date: 20110526
  Receipt Date: 20110517
  Transmission Date: 20111010
  Serious: Yes (Death, Other)
  Sender: FDA-Public Use
  Company Number: JP-JNJFOC-20110207433

PATIENT
  Sex: Female

DRUGS (49)
  1. LYRICA [Suspect]
     Indication: PAIN
     Route: 048
  2. ADEFURONIC [Concomitant]
     Indication: LUMBAR SPINAL STENOSIS
     Route: 054
     Dates: start: 20081206, end: 20101221
  3. ANFLAVATE [Concomitant]
     Indication: RHEUMATOID ARTHRITIS
     Route: 065
     Dates: start: 20100131, end: 20100131
  4. FELBINAC [Concomitant]
     Indication: PERIARTHRITIS
     Route: 061
     Dates: start: 20100818
  5. PRIMPERAN TAB [Concomitant]
     Route: 048
     Dates: start: 20100922, end: 20100929
  6. SODIUM HYALURONATE [Concomitant]
     Route: 065
  7. SODIUM HYALURONATE [Concomitant]
     Route: 065
  8. FENTANYL-100 [Suspect]
     Route: 062
     Dates: start: 20110214, end: 20110218
  9. RHEUMATREX [Suspect]
     Route: 048
     Dates: start: 20110205
  10. ANTIDIABETIC DRUG [Suspect]
     Indication: PRODUCT USED FOR UNKNOWN INDICATION
     Route: 065
  11. SUMILU [Concomitant]
     Indication: RHEUMATOID ARTHRITIS
     Route: 062
     Dates: start: 20090510
  12. FELBINAC [Concomitant]
     Route: 062
     Dates: start: 20100823
  13. NOLPORT [Concomitant]
     Route: 065
  14. FENTANYL-100 [Suspect]
     Route: 062
     Dates: start: 20110214
  15. RHEUMATREX [Suspect]
     Indication: RHEUMATOID ARTHRITIS
     Route: 048
     Dates: start: 20101201
  16. RHEUMATREX [Suspect]
     Route: 048
     Dates: end: 20101201
  17. DEXART [Concomitant]
     Route: 065
  18. ADEFURONIC [Concomitant]
     Indication: RHEUMATOID ARTHRITIS
     Route: 054
     Dates: start: 20081206, end: 20101221
  19. ANFLAVATE [Concomitant]
     Indication: SPINAL OSTEOARTHRITIS
     Route: 065
     Dates: start: 20100131, end: 20100131
  20. FELBINAC [Concomitant]
     Route: 062
     Dates: start: 20100823
  21. PRORENAL [Concomitant]
     Indication: LUMBAR SPINAL STENOSIS
     Route: 048
     Dates: start: 20101018, end: 20101102
  22. XYLOCAINE [Concomitant]
     Route: 065
  23. LYRICA [Suspect]
     Indication: NEUROPATHY PERIPHERAL
     Route: 048
  24. ADEFURONIC [Concomitant]
     Indication: SPINAL OSTEOARTHRITIS
     Route: 054
     Dates: start: 20081206, end: 20101221
  25. ANFLAVATE [Concomitant]
     Indication: PERIARTHRITIS
     Route: 065
     Dates: start: 20100131, end: 20100131
  26. ANFLAVATE [Concomitant]
     Indication: LUMBAR SPINAL STENOSIS
     Route: 065
     Dates: start: 20100131, end: 20100131
  27. ETIZOLAM [Concomitant]
     Indication: ANXIETY DISORDER
     Route: 048
     Dates: start: 20090420
  28. FELBINAC [Concomitant]
     Route: 062
     Dates: start: 20100823
  29. ELCATONIN [Concomitant]
     Route: 030
  30. CYANOCOBALAMIN [Concomitant]
     Route: 065
  31. FENTANYL-100 [Suspect]
     Route: 062
     Dates: start: 20101012, end: 20110214
  32. LYRICA [Suspect]
     Route: 048
     Dates: start: 20110125
  33. PROCHLORPERAZINE [Suspect]
     Indication: PRODUCT USED FOR UNKNOWN INDICATION
     Route: 065
  34. LOXONIN [Suspect]
     Indication: PAIN
     Route: 065
  35. SUMILU [Concomitant]
     Indication: SPINAL OSTEOARTHRITIS
     Route: 062
     Dates: start: 20090510
  36. SUMILU [Concomitant]
     Indication: LUMBAR SPINAL STENOSIS
     Route: 062
     Dates: start: 20090510
  37. CILOSTAZOL [Concomitant]
     Indication: ARTERIOSCLEROSIS OBLITERANS
     Route: 048
     Dates: start: 20101214
  38. FELBINAC [Concomitant]
     Indication: SPINAL OSTEOARTHRITIS
     Route: 061
     Dates: start: 20100818
  39. FELBINAC [Concomitant]
     Route: 062
     Dates: start: 20100823
  40. SUMILU [Concomitant]
     Indication: PERIARTHRITIS
     Route: 062
     Dates: start: 20090510
  41. FELBINAC [Concomitant]
     Indication: RHEUMATOID ARTHRITIS
     Route: 061
     Dates: start: 20100818
  42. FENTANYL-100 [Suspect]
     Indication: PAIN
     Route: 062
     Dates: start: 20110216, end: 20110218
  43. FENTANYL-100 [Suspect]
     Route: 062
     Dates: start: 20101012, end: 20110214
  44. FENTANYL-100 [Suspect]
     Route: 062
     Dates: start: 20100922, end: 20101012
  45. FENTANYL-100 [Suspect]
     Route: 062
     Dates: start: 20100922, end: 20101012
  46. LYRICA [Suspect]
     Route: 048
     Dates: start: 20110125
  47. ADEFURONIC [Concomitant]
     Indication: PERIARTHRITIS
     Route: 054
     Dates: start: 20081206, end: 20101221
  48. FELBINAC [Concomitant]
     Indication: LUMBAR SPINAL STENOSIS
     Route: 061
     Dates: start: 20100818
  49. PROCHLORPERAZINE [Concomitant]
     Route: 048
     Dates: start: 20110214

REACTIONS (19)
  - CONDITION AGGRAVATED [None]
  - ABNORMAL BEHAVIOUR [None]
  - INTERSTITIAL LUNG DISEASE [None]
  - ALTERED STATE OF CONSCIOUSNESS [None]
  - ALANINE AMINOTRANSFERASE INCREASED [None]
  - STAPHYLOCOCCAL INFECTION [None]
  - SCIATICA [None]
  - SEPSIS [None]
  - SPEECH DISORDER [None]
  - RESPIRATION ABNORMAL [None]
  - BACK PAIN [None]
  - TOXICITY TO VARIOUS AGENTS [None]
  - MENTAL IMPAIRMENT [None]
  - NAUSEA [None]
  - ASPARTATE AMINOTRANSFERASE INCREASED [None]
  - OXYGEN SATURATION DECREASED [None]
  - HEADACHE [None]
  - CIRCULATORY COLLAPSE [None]
  - SOMNOLENCE [None]
